FAERS Safety Report 4285568-0 (Version None)
Quarter: 2004Q1

REPORT INFORMATION
  Report Type: 
  Country: None (occurrence: None)
  Receive Date: 20040204
  Receipt Date: 20040123
  Transmission Date: 20041129
  Serious: Yes (Hospitalization)
  Sender: FDA-Public Use
  Company Number: USA-2004-0012611

PATIENT
  Age: 19 Year
  Sex: Male

DRUGS (1)
  1. SPECTRACEF [Suspect]
     Indication: PNEUMONIA
     Dosage: 400 MG, BID, ORAL
     Route: 048

REACTIONS (1)
  - PNEUMONIA [None]
